FAERS Safety Report 17052038 (Version 2)
Quarter: 2019Q4

REPORT INFORMATION
  Report Type: Spontaneous
  Country: JP (occurrence: JP)
  Receive Date: 20191120
  Receipt Date: 20191205
  Transmission Date: 20200122
  Serious: Yes (Hospitalization, Other)
  Sender: FDA-Public Use
  Company Number: JP-ACCORD-160879

PATIENT
  Age: 15 Year
  Sex: Female

DRUGS (4)
  1. ARIPIPRAZOLE. [Suspect]
     Active Substance: ARIPIPRAZOLE
     Indication: SCHIZOPHRENIA
  2. ARIPIPRAZOLE. [Suspect]
     Active Substance: ARIPIPRAZOLE
     Indication: SCHIZOPHRENIA
     Dosage: UP TO 30 MG/ DAY FOR 2 WEEKS
  3. CLOZAPINE. [Suspect]
     Active Substance: CLOZAPINE
     Indication: SCHIZOPHRENIA
     Dosage: INCREASED THE CLOZAPINE DOSE TO 225 MG/ DAY
  4. BLONANSERIN [Suspect]
     Active Substance: BLONANSERIN
     Indication: SCHIZOPHRENIA
     Dosage: INITIALLY UP TO 24 MG/ DAY FOR 4 WEEKS, AS A SINGLE AGENT

REACTIONS (7)
  - Nausea [Unknown]
  - Somnolence [Recovering/Resolving]
  - Leukopenia [Unknown]
  - Hypoaesthesia [Unknown]
  - Drug intolerance [Unknown]
  - Akathisia [Recovered/Resolved]
  - Neutropenia [Unknown]
